FAERS Safety Report 18827969 (Version 1)
Quarter: 2021Q1

REPORT INFORMATION
  Report Type: Report from Study
  Country: US (occurrence: US)
  Receive Date: 20210202
  Receipt Date: 20210202
  Transmission Date: 20210419
  Serious: Yes (Death, Hospitalization, Other)
  Sender: FDA-Public Use
  Company Number: US-BAUSCH-BL-2021-003834

PATIENT
  Age: 89 Year
  Sex: Female

DRUGS (1)
  1. XIFAXAN [Suspect]
     Active Substance: RIFAXIMIN
     Indication: HEPATIC CIRRHOSIS
     Route: 048
     Dates: start: 202002

REACTIONS (6)
  - Death [Fatal]
  - Cardiac disorder [Unknown]
  - Enuresis [Unknown]
  - Loss of consciousness [Unknown]
  - Oesophageal varices haemorrhage [Unknown]
  - Hepatic failure [Unknown]

NARRATIVE: CASE EVENT DATE: 202101
